FAERS Safety Report 7166938-X (Version None)
Quarter: 2010Q4

REPORT INFORMATION
  Report Type: 
  Country: None (occurrence: None)
  Receive Date: 20101213
  Receipt Date: 20101213
  Transmission Date: 20110411
  Serious: Yes (Other)
  Sender: FDA-Public Use
  Company Number: None

PATIENT
  Age: 83 Year
  Sex: Female
  Weight: 67.1324 kg

DRUGS (1)
  1. BONIVA [Suspect]
     Indication: BONE DISORDER
     Dosage: ONCE MONTHLY
     Dates: start: 20091118, end: 20100818

REACTIONS (2)
  - GASTRIC ULCER [None]
  - SLEEP DISORDER DUE TO GENERAL MEDICAL CONDITION, INSOMNIA TYPE [None]
